FAERS Safety Report 10065643 (Version 1)
Quarter: 2014Q2

REPORT INFORMATION
  Report Type: Spontaneous
  Country: US (occurrence: US)
  Receive Date: 20140408
  Receipt Date: 20140408
  Transmission Date: 20141212
  Serious: No
  Sender: FDA-Public Use
  Company Number: US-PFIZER INC-2014095436

PATIENT
  Age: 68 Year
  Sex: Male

DRUGS (1)
  1. LOMOTIL [Suspect]
     Indication: DIARRHOEA
     Dosage: (DIPHENOXYLATE HCL 2.5 MG ATROPINE SULFATE 0.025 MG) 1-2 TABS P.O. NOT TO EXCEED 8/DAY
     Route: 048

REACTIONS (1)
  - Drug effect incomplete [Unknown]
